FAERS Safety Report 11314450 (Version 1)
Quarter: 2015Q3

REPORT INFORMATION
  Report Type: Spontaneous
  Country: IT (occurrence: IT)
  Receive Date: 20150727
  Receipt Date: 20150727
  Transmission Date: 20151125
  Serious: Yes (Hospitalization)
  Sender: FDA-Public Use
  Company Number: IT-BAYER-2015-386872

PATIENT
  Age: 64 Year
  Sex: Female

DRUGS (2)
  1. NOVALGIN [Concomitant]
     Active Substance: METAMIZOLE SODIUM
     Dosage: UNK
  2. ASPIRINA [Suspect]
     Active Substance: ASPIRIN
     Indication: COUGH
     Dosage: 1000 MG, QD
     Route: 048
     Dates: start: 20150114, end: 20150114

REACTIONS (1)
  - Abdominal distension [Recovering/Resolving]

NARRATIVE: CASE EVENT DATE: 20150114
